FAERS Safety Report 21406903 (Version 2)
Quarter: 2024Q1

REPORT INFORMATION
  Report Type: Report from Study
  Country: US (occurrence: US)
  Receive Date: 20221004
  Receipt Date: 20240308
  Transmission Date: 20240410
  Serious: Yes (Congenital Anomaly)
  Sender: FDA-Public Use
  Company Number: US-UCBSA-2022058218

PATIENT
  Age: 0 Year

DRUGS (13)
  1. CERTOLIZUMAB PEGOL [Suspect]
     Active Substance: CERTOLIZUMAB PEGOL
     Indication: Psoriatic arthropathy
     Dosage: 400 MILLIGRAM, EV 2 MONTHS
     Route: 064
     Dates: start: 20220422, end: 20220623
  2. CERTOLIZUMAB PEGOL [Suspect]
     Active Substance: CERTOLIZUMAB PEGOL
     Indication: Psoriasis
  3. DIETARY SUPPLEMENT [Concomitant]
     Active Substance: DIETARY SUPPLEMENT
     Indication: Product used for unknown indication
     Dosage: UNK
     Route: 064
  4. DOVONEX [Concomitant]
     Active Substance: CALCIPOTRIENE
     Indication: Psoriasis
     Dosage: UNK, TOPICAL-FACE, SCALP AND/OR SKIN (FREQUENCY: 3 WEEK)
     Route: 064
     Dates: start: 20150101, end: 20220504
  5. DOVONEX [Concomitant]
     Active Substance: CALCIPOTRIENE
     Dosage: UNK, TOPICAL-FACE, SCALP AND/OR SKIN, (FREQUENCY:1 DAY)
     Route: 064
     Dates: start: 20220515, end: 20220515
  6. MINERALS\VITAMINS [Concomitant]
     Active Substance: MINERALS\VITAMINS
     Indication: Product used for unknown indication
     Dosage: 1 PILL, 1 DAY
     Route: 064
     Dates: start: 20210915, end: 20220623
  7. FISH OIL [Concomitant]
     Active Substance: FISH OIL
     Indication: Pregnancy
     Dosage: 2000 MILLIGRAM, 1 DAY
     Route: 064
     Dates: start: 20220407, end: 20220623
  8. FISH OIL [Concomitant]
     Active Substance: FISH OIL
     Indication: Nutritional supplementation
  9. COENZYME Q10 [Concomitant]
     Active Substance: DIETARY SUPPLEMENT\UBIDECARENONE
     Indication: Pregnancy
     Dosage: 300 MILLIGRAM, 1 DAY
     Route: 064
     Dates: start: 20220531, end: 20220623
  10. CORTICOSTEROID NOS [Concomitant]
     Active Substance: CORTICOSTEROID NOS
     Indication: Psoriasis
     Dosage: UNK, TOPICAL-FACE, SCALP AND/OR SKIN; FREQUENCY : 3 MONTH
     Route: 064
     Dates: start: 20150101, end: 20220315
  11. ANALGESIC [BENZOCAINE;PHENAZONE] [Concomitant]
     Indication: Product used for unknown indication
     Dosage: UNK
     Route: 064
  12. SALICYLIC ACID [Concomitant]
     Active Substance: SALICYLIC ACID
     Indication: Psoriasis
     Dosage: (2.5 DAY), TOPICAL-FACE, SCALP AND/OR SKIN
     Route: 064
     Dates: start: 20220407, end: 20220623
  13. MODERNA COVID-19 VACCINE [Concomitant]
     Active Substance: ELASOMERAN
     Indication: COVID-19 immunisation
     Dosage: 1 SHOT, 1 DAY (DOSE 3)
     Route: 064
     Dates: start: 20210817, end: 20210817

REACTIONS (3)
  - Trisomy 13 [Not Recovered/Not Resolved]
  - Maternal exposure before pregnancy [Unknown]
  - Maternal exposure during pregnancy [Unknown]

NARRATIVE: CASE EVENT DATE: 20220422
